FAERS Safety Report 15656871 (Version 1)
Quarter: 2018Q4

REPORT INFORMATION
  Report Type: Spontaneous
  Country: US (occurrence: US)
  Receive Date: 20181126
  Receipt Date: 20181126
  Transmission Date: 20190205
  Serious: Yes (Other)
  Sender: FDA-Public Use
  Company Number: US-INDIVIOR LIMITED-INDV-115842-2018

PATIENT
  Sex: Male

DRUGS (1)
  1. SUBOXONE [Suspect]
     Active Substance: BUPRENORPHINE HYDROCHLORIDE\NALOXONE HYDROCHLORIDE
     Indication: DRUG USE DISORDER
     Dosage: 8 MG, DAILY
     Route: 065

REACTIONS (4)
  - Seizure [Recovered/Resolved]
  - Drug withdrawal syndrome [Recovered/Resolved]
  - Euphoric mood [Recovered/Resolved]
  - Drug abuse [Recovered/Resolved]
